FAERS Safety Report 20623226 (Version 1)
Quarter: 2022Q1

REPORT INFORMATION
  Report Type: Spontaneous
  Country: US (occurrence: None)
  Receive Date: 20220322
  Receipt Date: 20220322
  Transmission Date: 20220423
  Serious: No
  Sender: FDA-Public Use
  Company Number: None

PATIENT
  Age: 46 Year
  Sex: Female

DRUGS (1)
  1. KISQALI FEMARA CO-PACK [Suspect]
     Active Substance: LETROZOLE\RIBOCICLIB
     Dosage: 400-2.5 MG
     Route: 048
     Dates: start: 202108

REACTIONS (2)
  - Intentional dose omission [None]
  - Hypertension [None]

NARRATIVE: CASE EVENT DATE: 20220322
